FAERS Safety Report 11506530 (Version 1)
Quarter: 2015Q3

REPORT INFORMATION
  Report Type: Spontaneous
  Country: US (occurrence: US)
  Receive Date: 20150915
  Receipt Date: 20150915
  Transmission Date: 20151125
  Serious: No
  Sender: FDA-Public Use
  Company Number: US-ROCHE-800580

PATIENT
  Sex: Female

DRUGS (2)
  1. PEGASYS [Suspect]
     Active Substance: PEGINTERFERON ALFA-2A
     Indication: CHRONIC HEPATITIS C
     Route: 065
  2. RIBASPHERE RIBAPAK [Suspect]
     Active Substance: RIBAVIRIN
     Indication: CHRONIC HEPATITIS C
     Dosage: DOSE: 800 MG DAILY DIVIDED DOSES -3 RIVERS
     Route: 065

REACTIONS (11)
  - Influenza like illness [Unknown]
  - Weight decreased [Unknown]
  - Alopecia [Unknown]
  - Abdominal pain upper [Unknown]
  - Foreign body sensation in eyes [Unknown]
  - Fatigue [Unknown]
  - Nausea [Unknown]
  - Irritability [Unknown]
  - Injection site erythema [Unknown]
  - Depression [Unknown]
  - Headache [Unknown]
